FAERS Safety Report 14562725 (Version 2)
Quarter: 2018Q1

REPORT INFORMATION
  Report Type: Report from Study
  Country: None (occurrence: NL)
  Receive Date: 20180222
  Receipt Date: 20180222
  Transmission Date: 20180509
  Serious: Yes (Other)
  Sender: FDA-Public Use
  Company Number: NL-ABBVIE-18K-114-2251049-00

PATIENT
  Sex: Female

DRUGS (2)
  1. DUODOPA [Suspect]
     Active Substance: CARBIDOPA\LEVODOPA
     Indication: PARKINSON^S DISEASE
     Dosage: MD: 8, CD: 2.8, ED: 1.0
     Route: 050
     Dates: start: 20180113, end: 2018
  2. DUODOPA [Suspect]
     Active Substance: CARBIDOPA\LEVODOPA
     Dosage: MD: 7.9, CD: 2.8, ED: 1.0
     Route: 050
     Dates: start: 2018

REACTIONS (7)
  - Stoma site extravasation [Not Recovered/Not Resolved]
  - Stoma site erythema [Not Recovered/Not Resolved]
  - Stoma site infection [Not Recovered/Not Resolved]
  - Stoma complication [Not Recovered/Not Resolved]
  - Parkinson^s disease [Not Recovered/Not Resolved]
  - Sepsis [Not Recovered/Not Resolved]
  - Stoma site discharge [Not Recovered/Not Resolved]

NARRATIVE: CASE EVENT DATE: 2018
